FAERS Safety Report 6361963-0 (Version None)
Quarter: 2009Q3

REPORT INFORMATION
  Report Type: 
  Country: None (occurrence: None)
  Receive Date: 20090918
  Receipt Date: 20090910
  Transmission Date: 20100115
  Serious: Yes (Hospitalization)
  Sender: FDA-Public Use
  Company Number: CA-ABBOTT-09P-028-0596942-00

PATIENT
  Sex: Male
  Weight: 69.008 kg

DRUGS (15)
  1. LUPRON DEPOT [Suspect]
     Indication: PROSTATE CANCER
     Route: 050
     Dates: start: 20090515
  2. CRESTOR [Concomitant]
     Indication: DRUG USE FOR UNKNOWN INDICATION
     Route: 048
  3. NOVO-PREDNISONE [Concomitant]
     Indication: DRUG USE FOR UNKNOWN INDICATION
     Route: 048
  4. CELEBREX [Concomitant]
     Indication: DRUG USE FOR UNKNOWN INDICATION
     Route: 048
  5. NOVO-ZOPICLONE [Concomitant]
     Indication: DRUG USE FOR UNKNOWN INDICATION
     Route: 048
  6. VITAMIN B-12 [Concomitant]
     Indication: DRUG USE FOR UNKNOWN INDICATION
     Route: 048
  7. APO-METHOTREXATE [Concomitant]
     Indication: DRUG USE FOR UNKNOWN INDICATION
     Dosage: 8 - 2.5 MG TABS WEEKLY
     Route: 048
  8. RAN-PANTOPRAZOLE [Concomitant]
     Indication: DRUG USE FOR UNKNOWN INDICATION
     Route: 048
  9. PMS-PROCHLORPERAZINE [Concomitant]
     Indication: NAUSEA
     Dosage: 1 - 10 MG TAB EVERY 4 HOURS AS NEEDED
     Route: 048
  10. PMS-PROCHLORPERAZINE [Concomitant]
     Indication: VOMITING
  11. CALCITE 500+D [Concomitant]
     Indication: DRUG USE FOR UNKNOWN INDICATION
     Route: 048
  12. APO-ACETAMINOPHEN [Concomitant]
     Indication: DRUG USE FOR UNKNOWN INDICATION
     Dosage: 2 - 500 MG TABS EVERY 6 HOURS AS NEEDED
     Route: 048
  13. ATIVAN [Concomitant]
     Indication: DRUG USE FOR UNKNOWN INDICATION
     Dosage: 1 - 1 MG TABLET TWICE DAILY AS NEEDED
     Route: 048
  14. STATEX [Concomitant]
     Indication: PAIN
     Dosage: 1/2 - 5 MG TAB EVERY 4 HOURS AS NEEDED
     Route: 048
  15. FRAGMIN [Concomitant]
     Indication: DRUG USE FOR UNKNOWN INDICATION
     Route: 058
     Dates: start: 20090513

REACTIONS (2)
  - BLOOD PRESSURE SYSTOLIC DECREASED [None]
  - PHLEBITIS [None]
